FAERS Safety Report 22737368 (Version 8)
Quarter: 2023Q4

REPORT INFORMATION
  Report Type: Report from Study
  Country: AU (occurrence: AU)
  Receive Date: 20230721
  Receipt Date: 20231117
  Transmission Date: 20240110
  Serious: Yes (Hospitalization)
  Sender: FDA-Public Use
  Company Number: AU-JNJFOC-20230517787

PATIENT
  Age: 78 Year
  Sex: Male
  Weight: 76 kg

DRUGS (37)
  1. CILTACABTAGENE AUTOLEUCEL [Suspect]
     Active Substance: CILTACABTAGENE AUTOLEUCEL
     Indication: Plasma cell myeloma
     Route: 042
     Dates: start: 20230419, end: 20230419
  2. CYCLOPHOSPHAMIDE [Concomitant]
     Active Substance: CYCLOPHOSPHAMIDE
     Indication: Plasma cell myeloma
     Route: 042
     Dates: start: 20230412, end: 20230414
  3. FLUDARABINE [Concomitant]
     Active Substance: FLUDARABINE PHOSPHATE
     Indication: Plasma cell myeloma
     Route: 042
     Dates: start: 20230412, end: 20230414
  4. CALCIUM CARBONATE [Concomitant]
     Active Substance: CALCIUM CARBONATE
     Indication: Prophylaxis
     Route: 048
     Dates: start: 20220501
  5. ESOMEPRAZOLE [Concomitant]
     Active Substance: ESOMEPRAZOLE
     Indication: Gastrointestinal disorder therapy
     Route: 048
     Dates: start: 20220501
  6. VALACYCLOVIR HYDROCHLORIDE [Concomitant]
     Active Substance: VALACYCLOVIR HYDROCHLORIDE
     Indication: Antiviral prophylaxis
     Route: 048
     Dates: start: 20220916
  7. ZOLEDRONIC ACID [Concomitant]
     Active Substance: ZOLEDRONIC ACID
     Indication: Prophylaxis
     Route: 042
     Dates: start: 20220916
  8. MOVICOL [Concomitant]
     Active Substance: POLYETHYLENE GLYCOL 3350\POTASSIUM CHLORIDE\SODIUM BICARBONATE\SODIUM CHLORIDE
     Indication: Constipation
     Route: 048
     Dates: start: 20220923
  9. METHYL SALICYLATE\PEPPERMINT OIL\SODIUM BICARBONATE\SODIUM CHLORIDE [Concomitant]
     Active Substance: METHYL SALICYLATE\PEPPERMINT OIL\SODIUM BICARBONATE\SODIUM CHLORIDE
     Indication: Infection prophylaxis
     Route: 048
     Dates: start: 20221006
  10. METFORMIN [Concomitant]
     Active Substance: METFORMIN HYDROCHLORIDE
     Indication: Type 2 diabetes mellitus
     Route: 048
     Dates: start: 20221028
  11. APIXABAN [Concomitant]
     Active Substance: APIXABAN
     Indication: Atrial fibrillation
     Route: 048
     Dates: start: 20221031
  12. MAGNESIUM ASPARTATE [Concomitant]
     Active Substance: MAGNESIUM ASPARTATE
     Indication: Atrial fibrillation
     Route: 048
     Dates: start: 20221031
  13. METOPROLOL [Concomitant]
     Active Substance: METOPROLOL
     Indication: Atrial fibrillation
     Route: 048
     Dates: start: 20221031, end: 20230822
  14. LOMOTIL [Concomitant]
     Active Substance: ATROPINE SULFATE\DIPHENOXYLATE HYDROCHLORIDE
     Indication: Diarrhoea
     Dosage: 2.5/0.025 MG
     Route: 048
     Dates: start: 20221115
  15. TOCILIZUMAB [Concomitant]
     Active Substance: TOCILIZUMAB
     Indication: Cytokine release syndrome
     Route: 042
     Dates: start: 20230423, end: 20230423
  16. TOCILIZUMAB [Concomitant]
     Active Substance: TOCILIZUMAB
     Route: 042
     Dates: start: 20230424, end: 20230424
  17. TOCILIZUMAB [Concomitant]
     Active Substance: TOCILIZUMAB
     Route: 042
     Dates: start: 20230426, end: 20230426
  18. BACTRIM DS [Concomitant]
     Active Substance: SULFAMETHOXAZOLE\TRIMETHOPRIM
     Indication: Infection prophylaxis
     Dosage: 160/800
     Route: 048
     Dates: start: 20230410
  19. LEVETIRACETAM [Concomitant]
     Active Substance: LEVETIRACETAM
     Indication: Seizure prophylaxis
     Route: 048
     Dates: start: 20230419, end: 20230502
  20. LEVETIRACETAM [Concomitant]
     Active Substance: LEVETIRACETAM
     Route: 048
     Dates: start: 20230506, end: 20230529
  21. PIPERACILLIN SODIUM\TAZOBACTAM SODIUM [Concomitant]
     Active Substance: PIPERACILLIN SODIUM\TAZOBACTAM SODIUM
     Indication: Pyrexia
     Dosage: 4.0/0.5 G
     Route: 042
     Dates: start: 20230423, end: 20230428
  22. ACETAMINOPHEN [Concomitant]
     Active Substance: ACETAMINOPHEN
     Indication: Antipyresis
     Route: 048
     Dates: start: 20230424, end: 20230502
  23. TEMAZEPAM [Concomitant]
     Active Substance: TEMAZEPAM
     Indication: Insomnia
     Route: 048
     Dates: start: 20230509, end: 20230509
  24. DOCUSATE SODIUM\SENNOSIDE B [Concomitant]
     Active Substance: DOCUSATE SODIUM\SENNOSIDE B
     Indication: Constipation
     Dosage: 50/8 MG
     Route: 048
     Dates: start: 20230507, end: 20230516
  25. NOVORAPID [Concomitant]
     Active Substance: INSULIN ASPART
     Indication: Type 2 diabetes mellitus
     Dosage: 4
     Route: 058
     Dates: start: 20230430, end: 20230501
  26. NOVORAPID [Concomitant]
     Active Substance: INSULIN ASPART
     Dosage: 2
     Route: 058
     Dates: start: 20230507, end: 20230522
  27. POLYTEARS [Concomitant]
     Indication: Exposure keratitis
     Dosage: START TIME: 18:00 / END TIME: 18:00 / FREQ: OTHER
     Route: 047
     Dates: start: 20230508, end: 20230509
  28. SODIUM CITRATE\SODIUM LAURYL SULFOACETATE [Concomitant]
     Active Substance: SODIUM CITRATE\SODIUM LAURYL SULFOACETATE
     Indication: Constipation
     Dosage: 450/45/3125 MG
     Route: 054
     Dates: start: 20230509, end: 20230509
  29. POLYVISC EYE [Concomitant]
     Indication: Exposure keratitis
     Dosage: START TIME: 04:00 / END TIME: 08:00
     Route: 047
     Dates: start: 20230509, end: 20230604
  30. POLYVISC EYE [Concomitant]
     Dosage: START TIME: 16:00 | END TIME: 20:00
     Route: 047
     Dates: start: 20230605, end: 20230608
  31. CARBOXYMETHYLCELLULOSE [Concomitant]
     Active Substance: CARBOXYMETHYLCELLULOSE
     Indication: Chronic inflammatory demyelinating polyradiculoneuropathy
     Route: 047
     Dates: start: 20230510, end: 20230630
  32. NYSTATIN [Concomitant]
     Active Substance: NYSTATIN
     Indication: Oral candidiasis
     Route: 048
     Dates: start: 20230513, end: 20230515
  33. LIDOCAINE HYDROCHLORIDE [Concomitant]
     Active Substance: DEXTROSE MONOHYDRATE\EPINEPHRINE\EPINEPHRINE BITARTRATE\LIDOCAINE\LIDOCAINE HYDROCHLORIDE\LIDOCAINE
     Indication: Prophylaxis
     Dosage: ONCE
     Route: 058
     Dates: start: 20230517, end: 20230517
  34. MIDAZOLAM [Concomitant]
     Active Substance: MIDAZOLAM
     Indication: Prophylaxis
     Route: 042
     Dates: start: 20230517, end: 20230517
  35. FLUCONAZOLE [Concomitant]
     Active Substance: FLUCONAZOLE
     Indication: Antifungal prophylaxis
     Route: 048
     Dates: start: 20230519, end: 20230630
  36. DOMPERIDONE [Concomitant]
     Active Substance: DOMPERIDONE
     Indication: Prophylaxis of nausea and vomiting
     Route: 048
     Dates: start: 20230607
  37. CHOLECALCIFEROL [Concomitant]
     Active Substance: CHOLECALCIFEROL
     Indication: Prophylaxis
     Route: 048
     Dates: start: 20220501

REACTIONS (14)
  - Chronic inflammatory demyelinating polyradiculoneuropathy [Recovered/Resolved]
  - Miller Fisher syndrome [Recovering/Resolving]
  - Dysphagia [Recovered/Resolved]
  - Trigeminal nerve disorder [Recovered/Resolved]
  - Facial nerve disorder [Recovered/Resolved]
  - Reduced facial expression [Recovered/Resolved]
  - IIIrd nerve disorder [Recovered/Resolved]
  - Dysarthria [Recovered/Resolved]
  - Dysdiadochokinesis [Recovered/Resolved]
  - Dysphonia [Recovered/Resolved]
  - Aphasia [Recovered/Resolved]
  - Bradykinesia [Not Recovered/Not Resolved]
  - Gait disturbance [Recovered/Resolved]
  - Parkinsonism [Not Recovered/Not Resolved]

NARRATIVE: CASE EVENT DATE: 20230506
